FAERS Safety Report 17015692 (Version 1)
Quarter: 2019Q4

REPORT INFORMATION
  Report Type: Spontaneous
  Country: CN (occurrence: CN)
  Receive Date: 20191111
  Receipt Date: 20191111
  Transmission Date: 20200122
  Serious: Yes (Hospitalization)
  Sender: FDA-Public Use
  Company Number: CN-ELI_LILLY_AND_COMPANY-CN201910016064

PATIENT
  Sex: Male

DRUGS (3)
  1. CIALIS [Suspect]
     Active Substance: TADALAFIL
     Dosage: 5 MG, DAILY
     Route: 048
  2. CIALIS [Suspect]
     Active Substance: TADALAFIL
     Dosage: 5 MG, DAILY
     Route: 048
     Dates: start: 20191025
  3. CIALIS [Suspect]
     Active Substance: TADALAFIL
     Indication: ERECTILE DYSFUNCTION
     Dosage: 5 MG, DAILY
     Route: 048
     Dates: start: 20191004

REACTIONS (2)
  - Nasopharyngitis [Unknown]
  - Intervertebral disc protrusion [Unknown]
